FAERS Safety Report 14779475 (Version 1)
Quarter: 2018Q2

REPORT INFORMATION
  Report Type: Spontaneous
  Country: US (occurrence: US)
  Receive Date: 20180419
  Receipt Date: 20180419
  Transmission Date: 20180711
  Serious: Yes (Other)
  Sender: FDA-Public Use
  Company Number: US-BAYER-2018-069687

PATIENT
  Sex: Male
  Weight: 100 kg

DRUGS (2)
  1. ALKA-SELTZER PLUS COLD SPARKLING ORIGINAL [Suspect]
     Active Substance: ASPIRIN\CHLORPHENIRAMINE MALEATE\PHENYLEPHRINE BITARTRATE
     Indication: BRONCHITIS
     Dosage: 2 DF, HS
     Route: 048
  2. MONTELUKAST [Concomitant]
     Active Substance: MONTELUKAST SODIUM
     Dosage: UNK

REACTIONS (3)
  - Drug dependence [Unknown]
  - Incorrect drug administration duration [Unknown]
  - Product use in unapproved indication [Unknown]
